FAERS Safety Report 14077717 (Version 1)
Quarter: 2017Q4

REPORT INFORMATION
  Report Type: Spontaneous
  Country: US (occurrence: US)
  Receive Date: 20171012
  Receipt Date: 20171012
  Transmission Date: 20180321
  Serious: No
  Sender: FDA-Public Use
  Company Number: US-BIOGEN-2017BI00469442

PATIENT
  Sex: Male

DRUGS (2)
  1. SPINRAZA [Suspect]
     Active Substance: NUSINERSEN
     Dosage: MAINTENANCE DOSE
     Route: 037
     Dates: start: 20170412
  2. SPINRAZA [Suspect]
     Active Substance: NUSINERSEN
     Indication: SPINAL MUSCULAR ATROPHY
     Dosage: LOADING DOSES: FIRST 3 LOADING DOSES EVERY 14 DAYS; 4TH LOADING DOSE ONCE AFTER 30 DAYS. MAINTENANCE
     Route: 037
     Dates: start: 20170412

REACTIONS (1)
  - Malaise [Unknown]
